FAERS Safety Report 5020827-5 (Version None)
Quarter: 2006Q2

REPORT INFORMATION
  Report Type: 
  Country: None (occurrence: None)
  Receive Date: 20060414
  Receipt Date: 20051214
  Transmission Date: 20061013
  Serious: Yes (Other)
  Sender: FDA-Public Use
  Company Number: US-JNJFOC-20051201811

PATIENT
  Age: 34 Year
  Sex: Male

DRUGS (4)
  1. ULTRAM [Suspect]
     Indication: DRUG USE FOR UNKNOWN INDICATION
     Dosage: 50 MG
  2. BENZODIAZEPINES (BENZODIAZEPINE DERIVATIVES) [Suspect]
     Indication: DRUG USE FOR UNKNOWN INDICATION
  3. HEROIN (DIAMORPHINE) [Suspect]
  4. METHADONE HCL [Suspect]

REACTIONS (1)
  - DRUG ABUSER [None]
